FAERS Safety Report 4530357-2 (Version None)
Quarter: 2004Q4

REPORT INFORMATION
  Report Type: 
  Country: None (occurrence: None)
  Receive Date: 20041215
  Receipt Date: 20041202
  Transmission Date: 20050328
  Serious: Yes (Hospitalization)
  Sender: FDA-Public Use
  Company Number: 2004103893

PATIENT
  Sex: Male

DRUGS (5)
  1. GEODON [Suspect]
     Indication: PARKINSON'S DISEASE
     Dosage: 80 MG (80 MG, 1 IN 1 D), ORAL
     Route: 048
     Dates: start: 20041119, end: 20041124
  2. BIPERIDEN HYDROCHLORIDE TAB [Concomitant]
  3. HALOPERIDOL [Concomitant]
  4. CHLORPROMAZINE [Concomitant]
  5. ENALAPRIL (ENALAPRIL) [Concomitant]

REACTIONS (2)
  - BLOOD PRESSURE INCREASED [None]
  - TREMOR [None]
